FAERS Safety Report 6065843-X (Version None)
Quarter: 2009Q1

REPORT INFORMATION
  Report Type: 
  Country: None (occurrence: None)
  Receive Date: 20090205
  Receipt Date: 20090126
  Transmission Date: 20090719
  Serious: Yes (Hospitalization)
  Sender: FDA-Public Use
  Company Number: FR-JNJFOC-20090106316

PATIENT
  Age: 58 Year
  Sex: Female

DRUGS (8)
  1. OFLOCET [Suspect]
     Indication: ARTHRITIS
     Route: 065
  2. RIFINAH [Suspect]
     Indication: DRUG USE FOR UNKNOWN INDICATION
     Route: 048
  3. CARTREX [Suspect]
     Indication: DRUG USE FOR UNKNOWN INDICATION
     Route: 048
  4. PYOSTACINE [Suspect]
     Indication: ARTHRITIS
     Route: 065
  5. LEVOTHYROX [Concomitant]
     Route: 048
  6. COLCHICINE [Concomitant]
     Route: 048
  7. NEXEN [Concomitant]
     Route: 065
  8. INIPOMP [Concomitant]
     Route: 065

REACTIONS (5)
  - CHOLESTATIC LIVER INJURY [None]
  - DRUG RASH WITH EOSINOPHILIA AND SYSTEMIC SYMPTOMS [None]
  - PERICARDIAL EFFUSION [None]
  - PLEURAL EFFUSION [None]
  - PLEUROPERICARDITIS [None]
